FAERS Safety Report 11832525 (Version 1)
Quarter: 2015Q4

REPORT INFORMATION
  Report Type: Spontaneous
  Country: US (occurrence: US)
  Receive Date: 20151214
  Receipt Date: 20151214
  Transmission Date: 20160305
  Serious: No
  Sender: FDA-Public Use
  Company Number: US-PFIZER INC-2015440908

PATIENT
  Sex: Male

DRUGS (1)
  1. XALKORI [Suspect]
     Active Substance: CRIZOTINIB
     Indication: NON-SMALL CELL LUNG CANCER
     Dosage: UNK
     Dates: start: 2012, end: 201506

REACTIONS (4)
  - Non-small cell lung cancer [Unknown]
  - Visual impairment [Unknown]
  - Peripheral swelling [Unknown]
  - Disease progression [Unknown]

NARRATIVE: CASE EVENT DATE: 2014
